FAERS Safety Report 12781059 (Version 1)
Quarter: 2016Q3

REPORT INFORMATION
  Report Type: Report from Study
  Country: CA (occurrence: CA)
  Receive Date: 20160926
  Receipt Date: 20160926
  Transmission Date: 20161109
  Serious: Yes (Other)
  Sender: FDA-Public Use
  Company Number: CA-GILEAD-2016-0196008

PATIENT
  Age: 56 Year
  Sex: Male

DRUGS (7)
  1. IBAVYR [Suspect]
     Active Substance: RIBAVIRIN
     Indication: CHRONIC HEPATITIS C
     Dosage: 1200 MG, UNK
     Route: 048
     Dates: start: 20160107
  2. METHADONE [Concomitant]
     Active Substance: METHADONE HYDROCHLORIDE
  3. QUETIAPINE. [Concomitant]
     Active Substance: QUETIAPINE
  4. SOFOSBUVIR [Suspect]
     Active Substance: SOFOSBUVIR
     Indication: CHRONIC HEPATITIS C
     Dosage: 400 MG, UNK
     Route: 048
     Dates: start: 20160107
  5. AVENTYL [Concomitant]
  6. TECTA [Concomitant]
     Active Substance: PANTOPRAZOLE MAGNESIUM
  7. TESTOSTERONE. [Concomitant]
     Active Substance: TESTOSTERONE

REACTIONS (17)
  - Pulmonary pain [Unknown]
  - Chest pain [Unknown]
  - Ageusia [Unknown]
  - Headache [Unknown]
  - Gait disturbance [Unknown]
  - Neuralgia [Unknown]
  - Dizziness [Unknown]
  - Back pain [Unknown]
  - Fatigue [Not Recovered/Not Resolved]
  - Hepatic pain [Unknown]
  - Nausea [Not Recovered/Not Resolved]
  - Arthralgia [Unknown]
  - Presyncope [Unknown]
  - Hyperhidrosis [Unknown]
  - Sciatica [Unknown]
  - Pallor [Unknown]
  - Asthenia [Not Recovered/Not Resolved]
